FAERS Safety Report 9182607 (Version 1)
Quarter: 2013Q1

REPORT INFORMATION
  Report Type: Spontaneous
  Country: US (occurrence: US)
  Receive Date: 20130322
  Receipt Date: 20130322
  Transmission Date: 20140127
  Serious: No
  Sender: FDA-Public Use
  Company Number: US-BRISTOL-MYERS SQUIBB COMPANY-16841611

PATIENT
  Age: 59 Year
  Sex: Male
  Weight: 126.98 kg

DRUGS (6)
  1. ERBITUX [Suspect]
     Indication: TONGUE NEOPLASM MALIGNANT STAGE UNSPECIFIED
     Route: 042
     Dates: start: 20120726
  2. EVOXAC [Concomitant]
  3. OMEPRAZOLE [Concomitant]
  4. PROZAC [Concomitant]
  5. CARBOPLATIN [Concomitant]
     Dosage: INF
  6. PROCHLORPERAZINE [Concomitant]

REACTIONS (1)
  - Rash [Not Recovered/Not Resolved]
